FAERS Safety Report 20249459 (Version 1)
Quarter: 2021Q4

REPORT INFORMATION
  Report Type: Spontaneous
  Country: US (occurrence: US)
  Receive Date: 20211229
  Receipt Date: 20211229
  Transmission Date: 20220303
  Serious: Yes (Other)
  Sender: FDA-Public Use
  Company Number: US-PURDUE-USA-2020-0211727

PATIENT
  Sex: Female

DRUGS (7)
  1. OXYCONTIN [Suspect]
     Active Substance: OXYCODONE HYDROCHLORIDE
     Indication: Back pain
     Dosage: UNKNOWN
     Route: 048
     Dates: start: 1994
  2. HYDROCODONE BITARTRATE AND ACETAMINOPHEN [Suspect]
     Active Substance: ACETAMINOPHEN\HYDROCODONE BITARTRATE
     Indication: Back pain
     Dosage: UNKNOWN 5-500 MG, 30 TABLET
     Route: 048
     Dates: start: 1994
  3. HYDROCODONE BITARTRATE AND ACETAMINOPHEN [Suspect]
     Active Substance: ACETAMINOPHEN\HYDROCODONE BITARTRATE
     Dosage: 5-500 MG UNK,60 TABLET
  4. ACETAMINOPHEN\OXYCODONE HYDROCHLORIDE [Suspect]
     Active Substance: ACETAMINOPHEN\OXYCODONE HYDROCHLORIDE
     Indication: Back pain
     Dosage: 5-500 MG, UNK, 24 TABLET
     Route: 048
     Dates: start: 1994
  5. ACETAMINOPHEN\OXYCODONE HYDROCHLORIDE [Suspect]
     Active Substance: ACETAMINOPHEN\OXYCODONE HYDROCHLORIDE
     Dosage: 5-500MG, UNK, 40 TABLET
  6. OXYCODONE HYDROCHLORIDE [Suspect]
     Active Substance: OXYCODONE HYDROCHLORIDE
     Indication: Back pain
     Dosage: UNKNOWN
     Route: 065
     Dates: start: 1994
  7. FENTANYL [Suspect]
     Active Substance: FENTANYL
     Indication: Back pain
     Dosage: UNKNOWN
     Route: 062
     Dates: start: 1994

REACTIONS (3)
  - Drug dependence [Unknown]
  - Drug withdrawal syndrome [Unknown]
  - Cerebral disorder [Unknown]
